FAERS Safety Report 9357869 (Version 2)
Quarter: 2013Q3

REPORT INFORMATION
  Report Type: Report from Study
  Country: ES (occurrence: ES)
  Receive Date: 20130620
  Receipt Date: 20130709
  Transmission Date: 20140515
  Serious: Yes (Life-Threatening, Hospitalization)
  Sender: FDA-Public Use
  Company Number: ES-CELGENEUS-144-21880-13054403

PATIENT
  Age: 69 Year
  Sex: Female
  Weight: 69.5 kg

DRUGS (9)
  1. REVLIMID [Suspect]
     Indication: PLASMA CELL MYELOMA
     Dosage: 10 MILLIGRAM
     Route: 048
     Dates: start: 20100304
  2. REVLIMID [Suspect]
     Route: 048
     Dates: end: 20130528
  3. DEXAMETHASONE [Suspect]
     Indication: PLASMA CELL MYELOMA
     Dosage: 20 MILLIGRAM
     Route: 048
     Dates: start: 20100304
  4. DEXAMETHASONE [Suspect]
     Route: 048
     Dates: end: 20130523
  5. ACETYLSALICYLIC ACID [Concomitant]
     Indication: THROMBOSIS PROPHYLAXIS
     Dosage: 100 MILLIGRAM
     Route: 065
  6. OMEPRAZOLE [Concomitant]
     Indication: GASTRITIS
     Route: 065
  7. ACOVIL [Concomitant]
     Indication: HYPERTENSION
     Route: 065
  8. EMCONCOR [Concomitant]
     Indication: HYPERTENSION
     Dosage: 2.5
     Route: 065
  9. SOMAZINA [Concomitant]
     Indication: AMNESIA
     Dosage: 1000
     Route: 065

REACTIONS (1)
  - Ischaemic stroke [Recovering/Resolving]
